FAERS Safety Report 25047943 (Version 3)
Quarter: 2025Q1

REPORT INFORMATION
  Report Type: Spontaneous
  Country: JP (occurrence: JP)
  Receive Date: 20250306
  Receipt Date: 20250328
  Transmission Date: 20250409
  Serious: Yes (Life-Threatening, Hospitalization, Other)
  Sender: TAKEDA
  Company Number: JP-teijin-202500860_FE_P_1

PATIENT
  Age: 11 Year
  Sex: Female
  Weight: 40 kg

DRUGS (7)
  1. FEBUXOSTAT [Suspect]
     Active Substance: FEBUXOSTAT
     Indication: Tumour lysis syndrome
     Dosage: 20 MILLIGRAM, TID
     Dates: start: 20250124, end: 20250130
  2. SULFAMETHOXAZOLE\TRIMETHOPRIM [Concomitant]
     Active Substance: SULFAMETHOXAZOLE\TRIMETHOPRIM
     Indication: B-cell type acute leukaemia
     Dosage: 2 DOSAGE FORM, BID
     Dates: start: 20250129
  3. FLUCONAZOLE [Concomitant]
     Active Substance: FLUCONAZOLE
     Indication: B-cell type acute leukaemia
     Dosage: 200 MILLIGRAM, QD
     Dates: start: 20250129, end: 20250131
  4. PREDONINE [Concomitant]
     Active Substance: PREDNISOLONE
     Indication: B-cell type acute leukaemia
     Dosage: 7 MILLIGRAM, TID
     Dates: start: 20250129, end: 20250129
  5. PREDONINE [Concomitant]
     Active Substance: PREDNISOLONE
     Dosage: 15 MILLIGRAM, TID
     Dates: start: 20250130, end: 20250130
  6. PREDONINE [Concomitant]
     Active Substance: PREDNISOLONE
     Dosage: 20 MILLIGRAM, TID
     Dates: start: 20250131, end: 20250131
  7. PREDONINE [Concomitant]
     Active Substance: PREDNISOLONE
     Dosage: 30 MILLIGRAM, TID
     Dates: start: 20250202

REACTIONS (2)
  - Acute kidney injury [Recovering/Resolving]
  - Product administered to patient of inappropriate age [Unknown]

NARRATIVE: CASE EVENT DATE: 20250131
